FAERS Safety Report 15907947 (Version 1)
Quarter: 2019Q1

REPORT INFORMATION
  Report Type: Spontaneous
  Country: CN (occurrence: CN)
  Receive Date: 20190204
  Receipt Date: 20190204
  Transmission Date: 20190417
  Serious: Yes (Other)
  Sender: FDA-Public Use
  Company Number: CN-PFIZER INC-2019038628

PATIENT
  Age: 68 Year
  Sex: Male
  Weight: 57 kg

DRUGS (2)
  1. SOLU-MEDROL [Suspect]
     Active Substance: METHYLPREDNISOLONE SODIUM SUCCINATE
     Indication: SUDDEN HEARING LOSS
     Dosage: 500 MG, 1X/DAY
     Route: 041
     Dates: start: 20181218, end: 20181221
  2. SODIUM CHLORIDE. [Concomitant]
     Active Substance: SODIUM CHLORIDE
     Indication: SUDDEN HEARING LOSS
     Dosage: 100 ML, 1X/DAY
     Route: 041
     Dates: start: 20181215, end: 20181218

REACTIONS (7)
  - Fatigue [Unknown]
  - Nasal obstruction [Unknown]
  - Pyrexia [Unknown]
  - Headache [Unknown]
  - Hepatic function abnormal [Unknown]
  - Product use in unapproved indication [Unknown]
  - Infection [Unknown]

NARRATIVE: CASE EVENT DATE: 20181221
